FAERS Safety Report 20704822 (Version 1)
Quarter: 2022Q2

REPORT INFORMATION
  Report Type: Spontaneous
  Country: US (occurrence: None)
  Receive Date: 20220412
  Receipt Date: 20220412
  Transmission Date: 20220721
  Serious: No
  Sender: FDA-Public Use
  Company Number: None

PATIENT
  Age: 80 Year
  Sex: Female
  Weight: 42.18 kg

DRUGS (13)
  1. OCTREOTIDE [Suspect]
     Active Substance: OCTREOTIDE
     Indication: Carcinoid syndrome
     Dosage: FREQUENCY : EVERY 8 HOURS;?
     Route: 058
     Dates: start: 201611
  2. NIFEDIPINE [Concomitant]
     Active Substance: NIFEDIPINE
  3. SIMVASTATIN [Concomitant]
     Active Substance: SIMVASTATIN
  4. SPIRONOLACTONE [Concomitant]
     Active Substance: SPIRONOLACTONE
  5. CLOPIDOGREL BISULFATE [Concomitant]
     Active Substance: CLOPIDOGREL BISULFATE
  6. PROAIR HFA [Concomitant]
     Active Substance: ALBUTEROL SULFATE
  7. DIAZEPAM [Concomitant]
     Active Substance: DIAZEPAM
  8. FUROSEMIDE [Concomitant]
     Active Substance: FUROSEMIDE
  9. LOPERAMIDE HYDROCHLORIDE [Concomitant]
     Active Substance: LOPERAMIDE HYDROCHLORIDE
  10. MULTIVITAMIN ADULTS [Concomitant]
  11. PREMARIN [Concomitant]
     Active Substance: ESTROGENS, CONJUGATED
  12. FAMOTIDINE [Concomitant]
     Active Substance: FAMOTIDINE
  13. SYMBICORT [Concomitant]
     Active Substance: BUDESONIDE\FORMOTEROL FUMARATE DIHYDRATE

REACTIONS (1)
  - Inappropriate schedule of product administration [None]
